FAERS Safety Report 4576693-5 (Version None)
Quarter: 2005Q1

REPORT INFORMATION
  Report Type: 
  Country: None (occurrence: None)
  Receive Date: 20050207
  Receipt Date: 20050124
  Transmission Date: 20050727
  Serious: Yes (Hospitalization)
  Sender: FDA-Public Use
  Company Number: DPC-2004-00028

PATIENT
  Age: 53 Year
  Sex: Female

DRUGS (2)
  1. EVOXAC [Suspect]
     Indication: SJOGREN'S SYNDROME
     Dosage: 3 CAPSULES (TOTAL), ORAL
     Route: 048
  2. NAPOXEN [Concomitant]

REACTIONS (8)
  - ANXIETY [None]
  - CAROTID ARTERY STENOSIS [None]
  - DEHYDRATION [None]
  - HETEROPHORIA [None]
  - NAUSEA [None]
  - ORTHOSTATIC HYPOTENSION [None]
  - TRANSIENT ISCHAEMIC ATTACK [None]
  - VOMITING [None]
